FAERS Safety Report 6088440-9 (Version None)
Quarter: 2009Q1

REPORT INFORMATION
  Report Type: 
  Country: None (occurrence: None)
  Receive Date: 20090224
  Receipt Date: 20090217
  Transmission Date: 20090719
  Serious: Yes (Life-Threatening, Hospitalization)
  Sender: FDA-Public Use
  Company Number: US-PFIZER INC-2009159755

PATIENT
  Sex: Male

DRUGS (7)
  1. LIPITOR [Suspect]
     Indication: BLOOD CHOLESTEROL INCREASED
     Dosage: UNK
     Dates: start: 20070401
  2. LIPITOR [Suspect]
     Indication: MYOCARDIAL INFARCTION
  3. NITROGLYCERIN [Concomitant]
     Dosage: UNK
     Route: 060
  4. CELEXA [Concomitant]
     Dosage: UNK
  5. LISINOPRIL [Concomitant]
     Dosage: 2.5 MG, UNK
  6. METOPROLOL [Concomitant]
     Dosage: 50 MG, UNK
  7. PLAVIX [Concomitant]
     Dosage: UNK

REACTIONS (2)
  - DRY SKIN [None]
  - MYOCARDIAL INFARCTION [None]
